FAERS Safety Report 5931911-3 (Version None)
Quarter: 2008Q4

REPORT INFORMATION
  Report Type: 
  Country: None (occurrence: None)
  Receive Date: 20081027
  Receipt Date: 20081015
  Transmission Date: 20090506
  Serious: Yes (Hospitalization)
  Sender: FDA-Public Use
  Company Number: CH-PFIZER INC-2008087426

PATIENT
  Sex: Male

DRUGS (4)
  1. SU-011,248 [Suspect]
     Indication: HEPATIC NEOPLASM
     Dosage: DAILY DOSE:37.5MG
     Route: 048
     Dates: start: 20080623
  2. TOREM [Concomitant]
     Route: 048
     Dates: start: 20080819
  3. EUTHYROX [Concomitant]
     Route: 048
     Dates: start: 20080915
  4. BISOPROLOL FUMARATE [Concomitant]
     Route: 048
     Dates: start: 20050101

REACTIONS (2)
  - GENERAL PHYSICAL HEALTH DETERIORATION [None]
  - RENAL IMPAIRMENT [None]
